FAERS Safety Report 4320274-5 (Version None)
Quarter: 2004Q1

REPORT INFORMATION
  Report Type: 
  Country: None (occurrence: None)
  Receive Date: 20040317
  Receipt Date: 20040308
  Transmission Date: 20041129
  Serious: Yes (Death, Life-Threatening, Hospitalization)
  Sender: FDA-Public Use
  Company Number: 2003AP00347

PATIENT
  Age: 75 Year
  Sex: Male

DRUGS (5)
  1. IRESSA [Suspect]
     Indication: LUNG NEOPLASM MALIGNANT
     Dosage: 250 MG DAILY PO
     Route: 048
     Dates: start: 20021212, end: 20030121
  2. NAVELBINE [Suspect]
     Indication: LUNG NEOPLASM MALIGNANT
     Dosage: DOSE ADMINISTERED ON DAY 1 OF THE CYCLE
     Dates: start: 20030116, end: 20030116
  3. NAVELBINE [Suspect]
     Indication: LUNG NEOPLASM MALIGNANT
     Dosage: DOSE ADMINISTERED ON DAY 8 OF THE CYCLE
     Dates: start: 20030123, end: 20030123
  4. CIPROXAN [Concomitant]
  5. PRIMAXIN [Concomitant]

REACTIONS (10)
  - BLOOD PRESSURE DECREASED [None]
  - BONE MARROW TOXICITY [None]
  - LUNG NEOPLASM MALIGNANT [None]
  - MALIGNANT NEOPLASM PROGRESSION [None]
  - NEUTROPHIL COUNT DECREASED [None]
  - PLATELET COUNT DECREASED [None]
  - RESPIRATORY FAILURE [None]
  - STOMATITIS [None]
  - URINE OUTPUT DECREASED [None]
  - WHITE BLOOD CELL COUNT DECREASED [None]
